FAERS Safety Report 13631810 (Version 3)
Quarter: 2017Q3

REPORT INFORMATION
  Report Type: Report from Study
  Country: US (occurrence: US)
  Receive Date: 20170608
  Receipt Date: 20170714
  Transmission Date: 20171127
  Serious: Yes (Hospitalization)
  Sender: FDA-Public Use
  Company Number: US-ACTELION-A-US2017-155097

PATIENT
  Age: 6 Year
  Sex: Male

DRUGS (14)
  1. FLUTICASONE. [Concomitant]
     Active Substance: FLUTICASONE
  2. REVATIO [Concomitant]
     Active Substance: SILDENAFIL CITRATE
  3. LACTOBACILLUS [Concomitant]
     Active Substance: LACTOBACILLUS ACIDOPHILUS
  4. VENTAVIS [Suspect]
     Active Substance: ILOPROST
     Indication: PULMONARY HYPERTENSION
     Dosage: 2.5 MCG 6 TO 9 X/DAY
     Route: 055
  5. VENTAVIS [Suspect]
     Active Substance: ILOPROST
     Dosage: 3 MCG, QID
     Route: 055
     Dates: start: 201610
  6. TRACLEER [Suspect]
     Active Substance: BOSENTAN
     Dosage: 31.25 MG, BID VIA G TUBE
     Route: 049
  7. TRACLEER [Suspect]
     Active Substance: BOSENTAN
     Dosage: 31.25 MG, QD
     Route: 048
     Dates: start: 201701
  8. BECLOMETHASONE [Concomitant]
     Active Substance: BECLOMETHASONE
  9. OMEPRAZOLE. [Concomitant]
     Active Substance: OMEPRAZOLE
  10. COLACE [Concomitant]
     Active Substance: DOCUSATE SODIUM
  11. ALBUTEROL. [Concomitant]
     Active Substance: ALBUTEROL
  12. MONTELUKAST [Concomitant]
     Active Substance: MONTELUKAST SODIUM
  13. SENNA [Concomitant]
     Active Substance: SENNA LEAF\SENNOSIDES\SENNOSIDES A AND B
  14. TRACLEER [Suspect]
     Active Substance: BOSENTAN
     Indication: PULMONARY HYPERTENSION
     Dosage: 31.25 MG, ORAL
     Route: 048

REACTIONS (2)
  - Viral infection [Unknown]
  - Nasopharyngitis [Unknown]
